FAERS Safety Report 4363660-X (Version None)
Quarter: 2004Q2

REPORT INFORMATION
  Report Type: 
  Country: None (occurrence: None)
  Receive Date: 20040524
  Receipt Date: 20040524
  Transmission Date: 20050107
  Serious: Yes (Death)
  Sender: FDA-Public Use
  Company Number: None

PATIENT
  Age: 87 Year
  Sex: Female

DRUGS (8)
  1. MOXIFLOXACIN HCL [Suspect]
     Indication: PNEUMONIA
     Dosage: 400 MG QAM INTRAVENOUS
     Route: 042
     Dates: start: 20040414, end: 20040416
  2. PRIMAXIN [Concomitant]
  3. BACTROBAN [Concomitant]
  4. DOPAMINE HCL [Concomitant]
  5. HEPARIN [Concomitant]
  6. WARFARIN SODIUM [Concomitant]
  7. DONEPEZIL HCL [Concomitant]
  8. FERROUS SULFATE TAB [Concomitant]

REACTIONS (1)
  - HEPATOTOXICITY [None]
